FAERS Safety Report 20086534 (Version 1)
Quarter: 2021Q4

REPORT INFORMATION
  Report Type: Spontaneous
  Country: IN (occurrence: IN)
  Receive Date: 20211118
  Receipt Date: 20211118
  Transmission Date: 20220303
  Serious: Yes (Life-Threatening, Hospitalization)
  Sender: FDA-Public Use
  Company Number: IN-TORRENT-00002954

PATIENT
  Age: 56 Year
  Sex: Male
  Weight: 48 kg

DRUGS (5)
  1. ESOMEPRAZOLE [Suspect]
     Active Substance: ESOMEPRAZOLE
     Indication: Hepatic cirrhosis
     Dosage: BD (TWICE A DAY)
     Route: 042
     Dates: start: 20211030, end: 20211102
  2. Hepamerz IV [Concomitant]
     Indication: Product used for unknown indication
     Dosage: UNKNOWN
     Route: 042
  3. Albumin IV [Concomitant]
     Indication: Product used for unknown indication
     Dosage: UNKNOWN
     Route: 042
  4. URSODIOL [Concomitant]
     Active Substance: URSODIOL
     Indication: Product used for unknown indication
     Dosage: UNKNOWN
  5. Lacilactone [Concomitant]
     Indication: Product used for unknown indication
     Dosage: UNKNOWN

REACTIONS (3)
  - Hypoglycaemia [Not Recovered/Not Resolved]
  - Condition aggravated [Not Recovered/Not Resolved]
  - Loss of consciousness [Not Recovered/Not Resolved]

NARRATIVE: CASE EVENT DATE: 20211031
